FAERS Safety Report 24348101 (Version 1)
Quarter: 2024Q3

REPORT INFORMATION
  Report Type: Spontaneous
  Country: TR (occurrence: TR)
  Receive Date: 20240923
  Receipt Date: 20240923
  Transmission Date: 20241017
  Serious: Yes (Hospitalization)
  Sender: STRIDES
  Company Number: TR-STRIDES ARCOLAB LIMITED-2024SP012125

PATIENT
  Age: 6 Year
  Sex: Male

DRUGS (7)
  1. METHYLPHENIDATE [Interacting]
     Active Substance: METHYLPHENIDATE
     Indication: Attention deficit hyperactivity disorder
     Dosage: UNK (IMMEDIATE-RELEASEIMMEDIATE-RELEASE)
     Route: 065
     Dates: start: 202205, end: 202209
  2. METHYLPHENIDATE [Interacting]
     Active Substance: METHYLPHENIDATE
     Dosage: 10 MILLIGRAM, QD (EXTENDED RELEASE)
     Route: 065
     Dates: start: 202209, end: 202305
  3. METHYLPHENIDATE [Interacting]
     Active Substance: METHYLPHENIDATE
     Dosage: 20 MILLIGRAM, QD (EXTENDED RELEASE)
     Route: 065
     Dates: start: 202305, end: 202310
  4. METHYLPHENIDATE [Interacting]
     Active Substance: METHYLPHENIDATE
     Dosage: 30 MILLIGRAM, QD (EXTENDED RELEASE)
     Route: 065
     Dates: start: 202310
  5. METHYLPHENIDATE [Interacting]
     Active Substance: METHYLPHENIDATE
     Dosage: UNK (EXTENDED RELEASE WAS RESUMED)
     Route: 065
  6. RISPERIDONE [Interacting]
     Active Substance: RISPERIDONE
     Indication: Attention deficit hyperactivity disorder
     Dosage: 0.25 MILLIGRAM, QD
     Route: 065
  7. RISPERIDONE [Interacting]
     Active Substance: RISPERIDONE
     Dosage: 0.5 MILLIGRAM, QD
     Route: 065
     Dates: start: 202208

REACTIONS (3)
  - Dystonia [Recovered/Resolved]
  - Drug interaction [Recovered/Resolved]
  - Product dose omission issue [Unknown]
